FAERS Safety Report 17091200 (Version 1)
Quarter: 2019Q4

REPORT INFORMATION
  Report Type: Spontaneous
  Country: IT (occurrence: IT)
  Receive Date: 20191129
  Receipt Date: 20191129
  Transmission Date: 20200122
  Serious: Yes (Hospitalization, Other)
  Sender: FDA-Public Use
  Company Number: IT-BRISTOL-MYERS SQUIBB COMPANY-BMS-2019-111727

PATIENT
  Sex: Female

DRUGS (1)
  1. NIVOLUMAB [Suspect]
     Active Substance: NIVOLUMAB
     Indication: LIP AND/OR ORAL CAVITY CANCER
     Dosage: 240 MILLIGRAM, Q2WK
     Route: 065
     Dates: start: 20190510

REACTIONS (3)
  - Peripheral artery stenosis [Unknown]
  - Peripheral arterial occlusive disease [Recovered/Resolved]
  - Intentional product use issue [Unknown]
